FAERS Safety Report 20875070 (Version 2)
Quarter: 2022Q2

REPORT INFORMATION
  Report Type: Spontaneous
  Country: US (occurrence: US)
  Receive Date: 20220526
  Receipt Date: 20220606
  Transmission Date: 20220720
  Serious: Yes (Hospitalization, Other)
  Sender: FDA-Public Use
  Company Number: US-MLMSERVICE-20220506-3544015-1

PATIENT
  Age: 10 Year
  Sex: Female
  Weight: 49.4 kg

DRUGS (3)
  1. AMOXICILLIN [Suspect]
     Active Substance: AMOXICILLIN
     Indication: Salivary gland enlargement
     Dosage: UNK
     Route: 065
  2. ETHOSUXIMIDE [Suspect]
     Active Substance: ETHOSUXIMIDE
     Indication: Petit mal epilepsy
     Dosage: 250 MILLIGRAM, ONCE A DAY
     Route: 065
  3. AMLODIPINE [Concomitant]
     Active Substance: AMLODIPINE BESYLATE
     Indication: Hypertension
     Dosage: UNK
     Route: 065

REACTIONS (8)
  - Kidney fibrosis [Recovered/Resolved]
  - Acute kidney injury [Recovered/Resolved]
  - Renal tubular atrophy [Recovered/Resolved]
  - Coombs positive haemolytic anaemia [Recovering/Resolving]
  - Tubulointerstitial nephritis [Recovered/Resolved]
  - Lupus-like syndrome [Recovered/Resolved]
  - Nephrotic syndrome [Recovered/Resolved]
  - Nephropathy toxic [Recovered/Resolved]
